FAERS Safety Report 9544206 (Version 1)
Quarter: 2013Q3

REPORT INFORMATION
  Report Type: Spontaneous
  Country: US (occurrence: US)
  Receive Date: 20130923
  Receipt Date: 20130923
  Transmission Date: 20140515
  Serious: No
  Sender: FDA-Public Use
  Company Number: US-ASTRAZENECA-2013SE56246

PATIENT
  Sex: Female

DRUGS (2)
  1. TENORMIN [Suspect]
     Route: 048
  2. LISINOPRIL [Suspect]
     Indication: HYPERTENSION
     Route: 048

REACTIONS (9)
  - Lip swelling [Unknown]
  - Chapped lips [Unknown]
  - Eye swelling [Not Recovered/Not Resolved]
  - Lacrimation increased [Unknown]
  - Eyelid exfoliation [Unknown]
  - Blood pressure increased [Unknown]
  - Heart rate increased [Recovered/Resolved]
  - Lip exfoliation [Unknown]
  - Dry eye [Not Recovered/Not Resolved]
